FAERS Safety Report 7421416-5 (Version None)
Quarter: 2011Q2

REPORT INFORMATION
  Report Type: 
  Country: None (occurrence: None)
  Receive Date: 20110418
  Receipt Date: 20110406
  Transmission Date: 20111010
  Serious: Yes (Other)
  Sender: FDA-Public Use
  Company Number: JP-ROCHE-771538

PATIENT
  Age: 75 Year
  Sex: Male

DRUGS (3)
  1. XELODA [Suspect]
     Indication: COLON CANCER METASTATIC
     Dosage: DOSAGE IS UNCERTAIN.
     Route: 048
  2. ANTICOAGULANTS [Concomitant]
     Dosage: DOSAGE IS UNCERTAIN.
  3. ELPLAT [Concomitant]
     Dosage: DOSAGE IS UNCERTAIN.
     Route: 041

REACTIONS (5)
  - HICCUPS [None]
  - DYSPHAGIA [None]
  - TRACHEAL STENOSIS [None]
  - DYSPHONIA [None]
  - PHARYNGEAL HAEMATOMA [None]
